FAERS Safety Report 5557292-5 (Version None)
Quarter: 2007Q4

REPORT INFORMATION
  Report Type: 
  Country: None (occurrence: None)
  Receive Date: 20071214
  Receipt Date: 20071206
  Transmission Date: 20080405
  Serious: Yes (Hospitalization)
  Sender: FDA-Public Use
  Company Number: US-BRISTOL-MYERS SQUIBB COMPANY-14003180

PATIENT
  Age: 64 Year
  Sex: Female

DRUGS (3)
  1. METFORMIN HCL [Suspect]
     Indication: TYPE 2 DIABETES MELLITUS
     Route: 048
  2. LISINOPRIL [Suspect]
  3. IBUPROFEN [Suspect]
     Indication: ARTHRITIS

REACTIONS (3)
  - LACTIC ACIDOSIS [None]
  - METABOLIC ACIDOSIS [None]
  - RENAL INJURY [None]
